FAERS Safety Report 5558949-2 (Version None)
Quarter: 2007Q4

REPORT INFORMATION
  Report Type: 
  Country: None (occurrence: None)
  Receive Date: 20071214
  Receipt Date: 20071203
  Transmission Date: 20080405
  Serious: No
  Sender: FDA-Public Use
  Company Number: FR-PFIZER INC-9916105

PATIENT
  Age: 38 Year
  Sex: Female

DRUGS (1)
  1. PIROXICAM [Suspect]
     Indication: OSTEOARTHRITIS
     Dosage: DAILY DOSE:20MG
     Route: 048

REACTIONS (1)
  - INFERTILITY FEMALE [None]
